FAERS Safety Report 8859970 (Version 1)
Quarter: 2012Q4

REPORT INFORMATION
  Report Type: 
  Country: BR (occurrence: BR)
  Receive Date: 20121025
  Receipt Date: 20121025
  Transmission Date: 20130627
  Serious: Yes (Other)
  Sender: FDA-Public Use
  Company Number: BR-PFIZER INC-2012263742

PATIENT
  Age: 60 Year
  Sex: Male

DRUGS (1)
  1. VIAGRA [Suspect]
     Dosage: UNK
     Route: 048
     Dates: start: 20080213

REACTIONS (3)
  - Infarction [Unknown]
  - Infarction [Unknown]
  - Blood cholesterol abnormal [Unknown]
